FAERS Safety Report 15700350 (Version 2)
Quarter: 2018Q4

REPORT INFORMATION
  Report Type: Spontaneous
  Country: ES (occurrence: ES)
  Receive Date: 20181207
  Receipt Date: 20181218
  Transmission Date: 20190205
  Serious: Yes (Hospitalization)
  Sender: FDA-Public Use
  Company Number: ES-FERRINGPH-2018FE06951

PATIENT

DRUGS (1)
  1. PROPESS [Suspect]
     Active Substance: DINOPROSTONE
     Indication: INDUCTION OF CERVIX RIPENING
     Dosage: UNK
     Route: 065
     Dates: start: 2007, end: 2007

REACTIONS (4)
  - Disseminated intravascular coagulation [Recovered/Resolved]
  - Uterine hypertonus [Recovered/Resolved]
  - Premature separation of placenta [Recovered/Resolved]
  - Uterine tachysystole [Recovered/Resolved]

NARRATIVE: CASE EVENT DATE: 2007
